FAERS Safety Report 8406939-4 (Version None)
Quarter: 2012Q2

REPORT INFORMATION
  Report Type: 
  Country: None (occurrence: None)
  Receive Date: 20120604
  Receipt Date: 20120525
  Transmission Date: 20120825
  Serious: Yes (Other)
  Sender: FDA-Public Use
  Company Number: US-ASTRAZENECA-2012SE28952

PATIENT
  Age: 53 Year
  Sex: Male
  Weight: 92.1 kg

DRUGS (5)
  1. SEROQUEL [Suspect]
     Indication: DEPRESSION
     Route: 048
     Dates: start: 20060101
  2. XANAX [Concomitant]
  3. SEROQUEL [Suspect]
     Indication: SCHIZOAFFECTIVE DISORDER
     Route: 048
     Dates: start: 20060101
  4. DEPAKOTE [Concomitant]
     Indication: EPILEPSY
  5. AMBIEN [Concomitant]
     Indication: SLEEP DISORDER

REACTIONS (7)
  - RENAL FAILURE [None]
  - DEPRESSION [None]
  - OBSESSIVE THOUGHTS [None]
  - HALLUCINATION, AUDITORY [None]
  - CONFUSIONAL STATE [None]
  - HALLUCINATION [None]
  - INTENTIONAL DRUG MISUSE [None]
